FAERS Safety Report 9414960 (Version 2)
Quarter: 2013Q3

REPORT INFORMATION
  Report Type: Spontaneous
  Country: US (occurrence: None)
  Receive Date: 20130718
  Receipt Date: 20130801
  Transmission Date: 20140515
  Serious: Yes (Other)
  Sender: FDA-Public Use
  Company Number: JPI-P-033681

PATIENT
  Age: 62 Year
  Sex: Female
  Weight: 65.77 kg

DRUGS (4)
  1. XYREM [Suspect]
     Indication: FIBROMYALGIA
     Dosage: 4.5 GM (2.25 GM, 2 IN 1 D) ORAL
     Route: 048
     Dates: start: 20051031
  2. GABAPENTIN [Suspect]
     Indication: NEUROPATHY PERIPHERAL
  3. CARVEDILOL [Concomitant]
  4. LISINOPRIL [Concomitant]

REACTIONS (4)
  - Fall [None]
  - Foot fracture [None]
  - Impaired healing [None]
  - Convulsion [None]
